FAERS Safety Report 23847718 (Version 4)
Quarter: 2025Q3

REPORT INFORMATION
  Report Type: Spontaneous
  Country: US (occurrence: US)
  Receive Date: 20240513
  Receipt Date: 20250813
  Transmission Date: 20251020
  Serious: Yes (Hospitalization, Other)
  Sender: SANOFI AVENTIS
  Company Number: US-SA-SAC20240511000476

PATIENT
  Age: 77 Year
  Sex: Female
  Weight: 68.4 kg

DRUGS (16)
  1. DUPIXENT [Suspect]
     Active Substance: DUPILUMAB
     Indication: Dermatitis atopic
     Dosage: 300 MG, QOW
     Route: 058
     Dates: end: 20240415
  2. DUPIXENT [Suspect]
     Active Substance: DUPILUMAB
     Dosage: 300 MG, QOW
     Route: 058
  3. DULOXETINE HYDROCHLORIDE [Concomitant]
     Active Substance: DULOXETINE HYDROCHLORIDE
  4. TROSPIUM CHLORIDE [Concomitant]
     Active Substance: TROSPIUM CHLORIDE
  5. MYRBETRIQ [Concomitant]
     Active Substance: MIRABEGRON
  6. HYDROCHLOROTHIAZIDE [Concomitant]
     Active Substance: HYDROCHLOROTHIAZIDE
  7. LISINOPRIL [Concomitant]
     Active Substance: LISINOPRIL
  8. METHENAMINE HIPPURATE [Concomitant]
     Active Substance: METHENAMINE HIPPURATE
  9. DEMANNOSE [Concomitant]
     Active Substance: DEMANNOSE
  10. HYDROXYZINE HYDROCHLORIDE [Concomitant]
     Active Substance: HYDROXYZINE HYDROCHLORIDE
  11. OMEPRAZOLE [Concomitant]
     Active Substance: OMEPRAZOLE
  12. CYCLOBENZAPRINE HYDROCHLORIDE [Concomitant]
     Active Substance: CYCLOBENZAPRINE HYDROCHLORIDE
  13. TRAMADOL HCL [Concomitant]
     Active Substance: TRAMADOL HYDROCHLORIDE
  14. BUDESONIDE [Concomitant]
     Active Substance: BUDESONIDE
  15. ELIQUIS [Concomitant]
     Active Substance: APIXABAN
  16. CRANBERRY [Concomitant]
     Active Substance: CRANBERRY

REACTIONS (4)
  - COVID-19 pneumonia [Unknown]
  - Tendon disorder [Unknown]
  - Head injury [Recovered/Resolved]
  - Limb operation [Unknown]

NARRATIVE: CASE EVENT DATE: 20240415
